FAERS Safety Report 5184868-X (Version None)
Quarter: 2006Q4

REPORT INFORMATION
  Report Type: 
  Country: None (occurrence: None)
  Receive Date: 20061220
  Receipt Date: 20060502
  Transmission Date: 20070319
  Serious: No
  Sender: FDA-Public Use
  Company Number: US-GLAXOSMITHKLINE-A0604031A

PATIENT

DRUGS (1)
  1. NICODERM CQ [Suspect]
     Dates: end: 20060421

REACTIONS (2)
  - ERYTHEMA [None]
  - HYPERSENSITIVITY [None]
